FAERS Safety Report 6403766-4 (Version None)
Quarter: 2009Q4

REPORT INFORMATION
  Report Type: 
  Country: None (occurrence: None)
  Receive Date: 20091016
  Receipt Date: 20091005
  Transmission Date: 20100525
  Serious: Yes (Other)
  Sender: FDA-Public Use
  Company Number: US-PFIZER INC-2004108162

PATIENT
  Sex: Female

DRUGS (9)
  1. PREMARIN [Suspect]
     Indication: HORMONE REPLACEMENT THERAPY
     Dosage: 0.3 MG, UNK
     Dates: start: 19920301, end: 19951101
  2. NORLUTATE [Suspect]
     Indication: HORMONE REPLACEMENT THERAPY
     Dosage: 5 MG, UNK
     Dates: start: 19920301, end: 19940401
  3. AYGESTIN [Suspect]
     Indication: HORMONE REPLACEMENT THERAPY
     Dosage: 5 MG, UNK
     Dates: start: 19940401, end: 19951201
  4. PREMPRO [Suspect]
     Indication: HORMONE REPLACEMENT THERAPY
     Dosage: 0.625/2.5MG
     Dates: start: 19951201, end: 20000201
  5. NORVASC [Concomitant]
     Indication: HYPERTENSION
     Dosage: UNK
     Dates: start: 19960801
  6. XANAX [Concomitant]
     Indication: ANXIETY
     Dosage: UNK
     Dates: start: 19981001
  7. DARVOCET-N 100 [Concomitant]
     Indication: ARTHRALGIA
     Dosage: UNK
     Dates: start: 19970101
  8. DARVOCET-N 100 [Concomitant]
     Indication: MYALGIA
  9. SYNTHROID [Concomitant]
     Indication: HYPOTHYROIDISM
     Dosage: UNK
     Dates: start: 19960101

REACTIONS (1)
  - BREAST CANCER FEMALE [None]
